FAERS Safety Report 10103713 (Version 1)
Quarter: 2014Q2

REPORT INFORMATION
  Report Type: Spontaneous
  Country: US (occurrence: US)
  Receive Date: 20140424
  Receipt Date: 20140424
  Transmission Date: 20141212
  Serious: Yes (Hospitalization)
  Sender: FDA-Public Use
  Company Number: US-TEVA-477071USA

PATIENT
  Sex: Female

DRUGS (3)
  1. LOSEASONIQUE [Suspect]
     Indication: CONTRACEPTION
     Route: 048
  2. METFORMIN [Concomitant]
     Indication: DIABETES MELLITUS
  3. LEXAPRO [Concomitant]
     Indication: DEPRESSION

REACTIONS (7)
  - Pancreatitis [Recovering/Resolving]
  - Dysarthria [Recovering/Resolving]
  - Pain [Recovering/Resolving]
  - Dysphagia [Recovering/Resolving]
  - Hepatic enzyme abnormal [Recovering/Resolving]
  - Blood pressure increased [Recovering/Resolving]
  - Headache [Recovering/Resolving]
